FAERS Safety Report 6373991-X (Version None)
Quarter: 2009Q3

REPORT INFORMATION
  Report Type: 
  Country: None (occurrence: None)
  Receive Date: 20090924
  Receipt Date: 20090914
  Transmission Date: 20100115
  Serious: Yes (Other)
  Sender: FDA-Public Use
  Company Number: CA-ROCHE-657295

PATIENT
  Sex: Female

DRUGS (1)
  1. CELLCEPT [Suspect]
     Route: 065
     Dates: start: 20030101

REACTIONS (2)
  - MULTIPLE SCLEROSIS [None]
  - NERVE INJURY [None]
